FAERS Safety Report 5977405-0 (Version None)
Quarter: 2008Q4

REPORT INFORMATION
  Report Type: 
  Country: None (occurrence: None)
  Receive Date: 20081203
  Receipt Date: 20081201
  Transmission Date: 20090506
  Serious: Yes (Other)
  Sender: FDA-Public Use
  Company Number: US-BAYER-200813589BCC

PATIENT
  Age: 33 Year
  Sex: Female

DRUGS (1)
  1. ALKA-SELTZER PLUS MUCUS + CONGESTION LIQUID GELS [Suspect]
     Indication: COUGH
     Dosage: AS USED: 2 DF  UNIT DOSE: 2 DF
     Route: 048
     Dates: start: 20080827, end: 20080828

REACTIONS (9)
  - AURICULAR SWELLING [None]
  - BLISTER [None]
  - HYPERSENSITIVITY [None]
  - OEDEMA PERIPHERAL [None]
  - PAIN IN EXTREMITY [None]
  - PRURITUS [None]
  - RASH MACULAR [None]
  - SWELLING FACE [None]
  - URTICARIA [None]
